FAERS Safety Report 6634572-3 (Version None)
Quarter: 2010Q1

REPORT INFORMATION
  Report Type: 
  Country: None (occurrence: None)
  Receive Date: 20100312
  Receipt Date: 20100312
  Transmission Date: 20100710
  Serious: Yes (Other)
  Sender: FDA-Public Use
  Company Number: None

PATIENT
  Sex: Male
  Weight: 84.369 kg

DRUGS (2)
  1. IBUPROFEN [Suspect]
     Indication: INFLAMMATION
     Dosage: 1 TABLET THREE TIMES A DAY PO
     Route: 048
     Dates: start: 20100211, end: 20100211
  2. IBUPROFEN [Suspect]
     Indication: PAIN
     Dosage: 1 TABLET THREE TIMES A DAY PO
     Route: 048
     Dates: start: 20100211, end: 20100211

REACTIONS (1)
  - VOMITING [None]
